FAERS Safety Report 6875446-2 (Version None)
Quarter: 2010Q3

REPORT INFORMATION
  Report Type: 
  Country: None (occurrence: None)
  Receive Date: 20100727
  Receipt Date: 20100715
  Transmission Date: 20110219
  Serious: Yes (Other)
  Sender: FDA-Public Use
  Company Number: CA-JNJFOC-20100705678

PATIENT
  Sex: Male
  Weight: 110 kg

DRUGS (1)
  1. REMICADE [Suspect]
     Indication: PRODUCT USED FOR UNKNOWN INDICATION
     Dosage: X 52
     Route: 042

REACTIONS (3)
  - CONDITION AGGRAVATED [None]
  - FISTULA [None]
  - FREQUENT BOWEL MOVEMENTS [None]
